FAERS Safety Report 4892708-9 (Version None)
Quarter: 2006Q1

REPORT INFORMATION
  Report Type: 
  Country: None (occurrence: None)
  Receive Date: 20060125
  Receipt Date: 20060125
  Transmission Date: 20060701
  Serious: Yes (Hospitalization)
  Sender: FDA-Public Use
  Company Number: None

PATIENT
  Sex: Male

DRUGS (1)
  1. CARBAMAZEPINE [Suspect]
     Indication: CONVULSION
     Dosage: 200MG, BID, ORAL
     Route: 048
     Dates: end: 20050908

REACTIONS (4)
  - CONVULSION [None]
  - DEPRESSED LEVEL OF CONSCIOUSNESS [None]
  - DRUG LEVEL INCREASED [None]
  - SOMNOLENCE [None]
